FAERS Safety Report 6324231-9 (Version None)
Quarter: 2009Q3

REPORT INFORMATION
  Report Type: 
  Country: None (occurrence: None)
  Receive Date: 20090824
  Receipt Date: 20090422
  Transmission Date: 20100115
  Serious: No
  Sender: FDA-Public Use
  Company Number: US-ABBOTT-09P-163-0569432-00

PATIENT
  Sex: Female

DRUGS (8)
  1. NIASPAN [Suspect]
     Indication: BLOOD TRIGLYCERIDES INCREASED
     Dosage: 500 MG AT BEDTIME
     Route: 048
     Dates: start: 20090322
  2. NIASPAN [Suspect]
     Indication: BLOOD CHOLESTEROL INCREASED
  3. TRILIPIX [Concomitant]
     Indication: DRUG USE FOR UNKNOWN INDICATION
  4. PLAVIX [Concomitant]
     Indication: DRUG USE FOR UNKNOWN INDICATION
  5. CRESTOR [Concomitant]
     Indication: DRUG USE FOR UNKNOWN INDICATION
  6. M.V.I. [Concomitant]
     Indication: DRUG USE FOR UNKNOWN INDICATION
  7. CALCIUM VIT D [Concomitant]
     Indication: DRUG USE FOR UNKNOWN INDICATION
  8. ASPIRIN [Concomitant]
     Indication: DRUG USE FOR UNKNOWN INDICATION
     Route: 048

REACTIONS (4)
  - CHILLS [None]
  - HYPERHIDROSIS [None]
  - SKIN BURNING SENSATION [None]
  - TEMPERATURE INTOLERANCE [None]
